FAERS Safety Report 10265749 (Version 1)
Quarter: 2014Q2

REPORT INFORMATION
  Report Type: Spontaneous
  Country: GB (occurrence: GB)
  Receive Date: 20140627
  Receipt Date: 20140627
  Transmission Date: 20141212
  Serious: Yes (Hospitalization, Other)
  Sender: FDA-Public Use
  Company Number: GB-BRISTOL-MYERS SQUIBB COMPANY-21011721

PATIENT
  Age: 72 Year
  Sex: Female

DRUGS (1)
  1. YERVOY [Suspect]
     Indication: MALIGNANT MELANOMA
     Route: 048
     Dates: start: 20130111

REACTIONS (2)
  - Colitis [Unknown]
  - Thrombosis in device [Unknown]
